FAERS Safety Report 7675178-7 (Version None)
Quarter: 2011Q3

REPORT INFORMATION
  Report Type: 
  Country: None (occurrence: None)
  Receive Date: 20110810
  Receipt Date: 20110801
  Transmission Date: 20111222
  Serious: Yes (Hospitalization)
  Sender: FDA-Public Use
  Company Number: JP-JNJFOC-20100602000

PATIENT
  Sex: Female
  Weight: 47 kg

DRUGS (10)
  1. ELEMENMIC [Concomitant]
     Indication: OVARIAN CANCER RECURRENT
     Route: 042
     Dates: start: 20090624
  2. METILON [Concomitant]
     Route: 042
     Dates: start: 20100302, end: 20100304
  3. SANDOSTATIN [Concomitant]
     Route: 058
     Dates: start: 20091226
  4. DOXORUBICIN HCL [Suspect]
     Dosage: CYCLE 2
     Route: 042
     Dates: start: 20100107, end: 20100107
  5. DOXORUBICIN HCL [Suspect]
     Dosage: CYCLE 1
     Route: 042
     Dates: start: 20091203, end: 20091203
  6. LEVOFLOXACIN [Concomitant]
     Route: 048
     Dates: start: 20091125, end: 20091207
  7. FULCALIQ 3 [Concomitant]
     Indication: OVARIAN CANCER RECURRENT
     Route: 041
     Dates: start: 20090629
  8. SANDOSTATIN [Concomitant]
     Indication: ILEUS
     Route: 058
     Dates: start: 20090707, end: 20091225
  9. MOHRUS TAPE [Concomitant]
     Indication: CANCER PAIN
     Dosage: AS NECCESSARY
     Route: 062
     Dates: start: 20091207, end: 20091209
  10. DOXORUBICIN HCL [Suspect]
     Indication: OVARIAN CANCER RECURRENT
     Dosage: CYCLE 3
     Route: 042
     Dates: start: 20100204, end: 20100204

REACTIONS (3)
  - ANAEMIA [None]
  - SMALL INTESTINAL OBSTRUCTION [None]
  - DYSPNOEA [None]
